FAERS Safety Report 9977827 (Version 1)
Quarter: 2014Q1

REPORT INFORMATION
  Report Type: Spontaneous
  Country: US (occurrence: US)
  Receive Date: 20140306
  Receipt Date: 20140306
  Transmission Date: 20141002
  Serious: No
  Sender: FDA-Public Use
  Company Number: US-ABBVIE-13P-163-1161374-00

PATIENT
  Age: 72 Year
  Sex: Female
  Weight: 68.55 kg

DRUGS (15)
  1. HUMIRA [Suspect]
     Indication: RHEUMATOID ARTHRITIS
     Dates: start: 20130905
  2. GABAPENTIN [Concomitant]
     Indication: NEUROPATHY PERIPHERAL
  3. SERTRALINE [Concomitant]
     Indication: CRYING
  4. LEFLUNOMIDE [Concomitant]
     Indication: RHEUMATOID ARTHRITIS
  5. LIDODERM [Concomitant]
     Indication: BACK PAIN
  6. LIDODERM [Concomitant]
     Indication: DECUBITUS ULCER
  7. FUROSEMIDE [Concomitant]
     Indication: CARDIAC DISORDER
     Dosage: AS NEEDED
  8. FUROSEMIDE [Concomitant]
     Indication: FLUID RETENTION
  9. OMEPRAZOLE [Concomitant]
     Indication: ABDOMINAL DISCOMFORT
  10. CARVEDILOL [Concomitant]
     Indication: CARDIAC DISORDER
  11. ENALAPRIL [Concomitant]
     Indication: HYPERTENSION
  12. ALENDRONATE [Concomitant]
     Indication: OSTEOPOROSIS
  13. MORPHINE [Concomitant]
     Indication: PAIN
  14. POTASSIUM [Concomitant]
     Indication: ELECTROLYTE SUBSTITUTION THERAPY
     Dosage: AS NEEDED WITH FUROSEMIDE
  15. TRAMADOL [Concomitant]
     Indication: PAIN

REACTIONS (3)
  - Injection site pain [Not Recovered/Not Resolved]
  - Injection site erythema [Not Recovered/Not Resolved]
  - Injection site pruritus [Not Recovered/Not Resolved]
